FAERS Safety Report 7134723-0 (Version None)
Quarter: 2010Q4

REPORT INFORMATION
  Report Type: 
  Country: None (occurrence: None)
  Receive Date: 20101203
  Receipt Date: 20101118
  Transmission Date: 20110411
  Serious: Yes (Other)
  Sender: FDA-Public Use
  Company Number: US-ROCHE-722943

PATIENT
  Sex: Male
  Weight: 86.2 kg

DRUGS (4)
  1. ACCUTANE [Suspect]
     Indication: ACNE
     Route: 065
     Dates: start: 19850101
  2. ACCUTANE [Suspect]
     Route: 065
     Dates: start: 19920101
  3. ACCUTANE [Suspect]
     Route: 065
     Dates: start: 19860101
  4. ACCUTANE [Suspect]
     Route: 065
     Dates: start: 19920324, end: 19921101

REACTIONS (9)
  - ALOPECIA [None]
  - COLITIS ULCERATIVE [None]
  - CROHN'S DISEASE [None]
  - DEPRESSION [None]
  - DRY SKIN [None]
  - GASTROINTESTINAL INJURY [None]
  - INFLAMMATORY BOWEL DISEASE [None]
  - NIGHT BLINDNESS [None]
  - SUICIDAL IDEATION [None]
